FAERS Safety Report 6710033-8 (Version None)
Quarter: 2010Q2

REPORT INFORMATION
  Report Type: 
  Country: None (occurrence: None)
  Receive Date: 20100430
  Receipt Date: 20100415
  Transmission Date: 20101027
  Serious: Yes (Other)
  Sender: FDA-Public Use
  Company Number: 2010001561

PATIENT
  Age: 80 Year
  Sex: Male

DRUGS (7)
  1. TARCEVA [Suspect]
     Indication: OESOPHAGEAL CARCINOMA
     Dosage: ORAL
     Route: 048
     Dates: start: 20100101, end: 20100201
  2. XELODA [Suspect]
     Indication: OESOPHAGEAL CARCINOMA
     Dosage: ORAL
     Route: 048
     Dates: start: 20090818
  3. CISPLATIN [Concomitant]
  4. TAXOTERE [Concomitant]
  5. GEMZAR [Concomitant]
  6. TAXOL [Concomitant]
  7. IRINOTECAN HCL [Concomitant]

REACTIONS (4)
  - CHEILITIS [None]
  - HYPERAESTHESIA [None]
  - STOMATITIS [None]
  - TUMOUR MARKER INCREASED [None]
